FAERS Safety Report 5589812-9 (Version None)
Quarter: 2008Q1

REPORT INFORMATION
  Report Type: 
  Country: None (occurrence: None)
  Receive Date: 20080110
  Receipt Date: 20080110
  Transmission Date: 20080703
  Serious: Yes (Disabling)
  Sender: FDA-Public Use
  Company Number: None

PATIENT
  Sex: Female
  Weight: 54.4316 kg

DRUGS (1)
  1. CYMBALTA [Suspect]
     Indication: DEPRESSION
     Dosage: 1 60 MG CAPSULE DAILY PO
     Route: 048
     Dates: start: 20060530, end: 20061201

REACTIONS (4)
  - BRUXISM [None]
  - EUPHORIC MOOD [None]
  - INSOMNIA [None]
  - IRRITABILITY [None]
